FAERS Safety Report 6437395-3 (Version None)
Quarter: 2009Q4

REPORT INFORMATION
  Report Type: 
  Country: None (occurrence: None)
  Receive Date: 20091110
  Receipt Date: 20080822
  Transmission Date: 20100525
  Serious: No
  Sender: FDA-Public Use
  Company Number: AEUSA200800194

PATIENT
  Age: 59 Year
  Sex: Female
  Weight: 84.8226 kg

DRUGS (19)
  1. GAMUNEX [Suspect]
     Indication: IMMUNODEFICIENCY
     Dosage: 85 GM; QM; IV
     Route: 042
     Dates: start: 20080401, end: 20080813
  2. SINGULAIR /01362602/ [Concomitant]
  3. FORADIL [Concomitant]
  4. SPIRIVA [Concomitant]
  5. XOPENEX [Concomitant]
  6. PULMICORT [Concomitant]
  7. ALBUTEROL [Concomitant]
  8. VERAPAMIL [Concomitant]
  9. PREVACID [Concomitant]
  10. LEVOTHYROXINE SODIUM [Concomitant]
  11. LASIX [Concomitant]
  12. ASPIRIN [Concomitant]
  13. WELCHOL [Concomitant]
  14. MULTI-VITAMINS [Concomitant]
  15. WELLBUTRIN XL [Concomitant]
  16. MUCINEX [Concomitant]
  17. COMPAZINE /00013304/ [Concomitant]
  18. CORTISONE [Concomitant]
  19. BENADRYL [Concomitant]

REACTIONS (9)
  - BODY TEMPERATURE INCREASED [None]
  - DYSPNOEA [None]
  - FEELING OF BODY TEMPERATURE CHANGE [None]
  - HEADACHE [None]
  - MIGRAINE [None]
  - NAUSEA [None]
  - TREMOR [None]
  - VIRAL INFECTION [None]
  - WHEEZING [None]
